FAERS Safety Report 9847278 (Version 1)
Quarter: 2014Q1

REPORT INFORMATION
  Report Type: Spontaneous
  Country: US (occurrence: US)
  Receive Date: 20140127
  Receipt Date: 20140127
  Transmission Date: 20141002
  Serious: Yes (Hospitalization)
  Sender: FDA-Public Use
  Company Number: US-DYAX CORP.-2013DX000196

PATIENT
  Age: 47 Year
  Sex: Male
  Weight: 98.06 kg

DRUGS (6)
  1. KALBITOR [Suspect]
     Indication: HEREDITARY ANGIOEDEMA
     Route: 058
     Dates: start: 201305, end: 201305
  2. KALBITOR [Suspect]
     Route: 058
     Dates: start: 2011
  3. EPINEPHRINE [Suspect]
     Indication: PRODUCT USED FOR UNKNOWN INDICATION
     Route: 065
  4. FIRAZYR [Concomitant]
     Indication: HEREDITARY ANGIOEDEMA
     Route: 065
  5. BENADRYL [Concomitant]
     Indication: PRODUCT USED FOR UNKNOWN INDICATION
     Route: 065
  6. DANAZOL [Concomitant]
     Indication: HEREDITARY ANGIOEDEMA
     Route: 065

REACTIONS (3)
  - Hereditary angioedema [Unknown]
  - Adverse reaction [Unknown]
  - Wheezing [Unknown]
